FAERS Safety Report 9867852 (Version 10)
Quarter: 2015Q2

REPORT INFORMATION
  Report Type: Report from Study
  Country: CA (occurrence: CA)
  Receive Date: 20140204
  Receipt Date: 20150403
  Transmission Date: 20150821
  Serious: Yes (Hospitalization, Other)
  Sender: FDA-Public Use
  Company Number: CA-ALEXION PHARMACEUTICALS INC.-A201400286

PATIENT

DRUGS (16)
  1. CIPROFLOXACIN. [Concomitant]
     Active Substance: CIPROFLOXACIN
     Indication: PROPHYLAXIS
     Dosage: 250 MG, BID
     Route: 048
     Dates: start: 20141216
  2. EMTEC [Concomitant]
     Indication: PAIN
     Dosage: 30 MG, PRN
     Route: 048
     Dates: start: 20120915, end: 20120916
  3. FUCIDIN H                          /01518501/ [Concomitant]
     Indication: INFECTION
     Dosage: UNK, QID
     Route: 061
     Dates: start: 20130413
  4. BENADRYL [Concomitant]
     Active Substance: DIPHENHYDRAMINE HYDROCHLORIDE
     Indication: PROPHYLAXIS
     Dosage: UNK, PRN
     Route: 065
     Dates: start: 201108
  5. BACTROBAN                          /00753901/ [Concomitant]
     Indication: WOUND
     Dosage: UNK
     Route: 061
     Dates: start: 20121018, end: 2012
  6. FOLIC ACID. [Concomitant]
     Active Substance: FOLIC ACID
     Indication: PRODUCT USED FOR UNKNOWN INDICATION
     Dosage: 5 MG, QD
     Route: 048
     Dates: start: 20110902
  7. SOLIRIS [Suspect]
     Active Substance: ECULIZUMAB
     Indication: PAROXYSMAL NOCTURNAL HAEMOGLOBINURIA
     Dosage: 600 MG, QW
     Route: 042
     Dates: start: 20111115, end: 20111208
  8. SOLIRIS [Suspect]
     Active Substance: ECULIZUMAB
     Dosage: 900 MG,Q 12 DAYS
     Route: 042
     Dates: start: 20120402
  9. CEFADROXIL. [Concomitant]
     Active Substance: CEFADROXIL
     Indication: INFECTION
     Dosage: 500 MG, BID
     Route: 048
     Dates: start: 20130413, end: 20130420
  10. SOLIRIS [Suspect]
     Active Substance: ECULIZUMAB
     Dosage: 900 MG, Q2W
     Route: 042
     Dates: start: 20111228, end: 20120322
  11. ABREVA [Concomitant]
     Active Substance: DOCOSANOL
     Indication: ORAL HERPES
     Dosage: UNK, PRN
     Route: 061
     Dates: start: 20120411
  12. CLOXAPEN                           /00012002/ [Concomitant]
     Indication: SUBCUTANEOUS ABSCESS
     Dosage: 50 MG, QID
     Route: 048
     Dates: start: 20120915, end: 20120922
  13. SOLIRIS [Suspect]
     Active Substance: ECULIZUMAB
     Dosage: 900 MG,Q 12 DAYS
     Route: 042
     Dates: start: 20120402
  14. TYLENOL [Concomitant]
     Active Substance: ACETAMINOPHEN
     Indication: PROPHYLAXIS
     Dosage: UNK, PRN
     Route: 065
     Dates: start: 201108
  15. SOLIRIS [Suspect]
     Active Substance: ECULIZUMAB
     Dosage: 900 MG,Q 12 DAYS
     Route: 042
     Dates: start: 20120402
  16. TEVA-CEFADROXIL [Concomitant]
     Indication: PROPHYLAXIS
     Dosage: 500 MG 2 TABS, BID
     Dates: start: 20121018, end: 20121028

REACTIONS (14)
  - Haemoglobin decreased [Unknown]
  - Nasopharyngitis [Recovered/Resolved]
  - Cough [Not Recovered/Not Resolved]
  - Palpitations [Not Recovered/Not Resolved]
  - Haemoglobin decreased [Recovered/Resolved]
  - Haemoglobin decreased [Recovered/Resolved]
  - Haemoglobin decreased [Recovered/Resolved]
  - Nephrolithiasis [Not Recovered/Not Resolved]
  - Haemoglobin decreased [Recovered/Resolved]
  - Haemoglobin decreased [Recovered/Resolved]
  - Haemoglobin decreased [Recovered/Resolved]
  - Haemoglobin decreased [Recovered/Resolved]
  - Haemoglobin decreased [Unknown]
  - Haemoglobin decreased [Recovered/Resolved]

NARRATIVE: CASE EVENT DATE: 2014
